FAERS Safety Report 11750579 (Version 3)
Quarter: 2016Q3

REPORT INFORMATION
  Report Type: Spontaneous
  Country: US (occurrence: US)
  Receive Date: 20151118
  Receipt Date: 20160722
  Transmission Date: 20161109
  Serious: Yes (Hospitalization, Disabling, Other)
  Sender: FDA-Public Use
  Company Number: US-ENDO PHARMACEUTICALS INC.-2015-004168

PATIENT
  Age: 51 Year
  Sex: Male
  Weight: 172.52 kg

DRUGS (3)
  1. ANDRODERM [Suspect]
     Active Substance: TESTOSTERONE
     Indication: ANDROGEN REPLACEMENT THERAPY
     Route: 065
     Dates: start: 20070228, end: 2015
  2. TESTIM [Suspect]
     Active Substance: TESTOSTERONE
     Indication: ANDROGEN REPLACEMENT THERAPY
     Route: 062
     Dates: start: 2000, end: 2015
  3. DEPO TESTOSTERONE [Suspect]
     Active Substance: TESTOSTERONE
     Indication: ANDROGEN REPLACEMENT THERAPY
     Route: 030
     Dates: start: 20150304

REACTIONS (7)
  - Cardiac failure congestive [Not Recovered/Not Resolved]
  - Transient ischaemic attack [Unknown]
  - Cerebrovascular accident [Not Recovered/Not Resolved]
  - Ischaemic cardiomyopathy [Not Recovered/Not Resolved]
  - Coronary artery disease [Not Recovered/Not Resolved]
  - Brain stem infarction [Not Recovered/Not Resolved]
  - Hypertensive encephalopathy [Not Recovered/Not Resolved]

NARRATIVE: CASE EVENT DATE: 20150615
